FAERS Safety Report 6279156-4 (Version None)
Quarter: 2009Q3

REPORT INFORMATION
  Report Type: 
  Country: None (occurrence: None)
  Receive Date: 20090723
  Receipt Date: 20090713
  Transmission Date: 20100115
  Serious: Yes (Death, Hospitalization)
  Sender: FDA-Public Use
  Company Number: DE-ROCHE-629897

PATIENT
  Sex: Female
  Weight: 38 kg

DRUGS (2)
  1. CAPECITABINE [Suspect]
     Indication: METASTATIC GASTRIC CANCER
     Dosage: 2 CYCLE
     Route: 048
     Dates: start: 20090223, end: 20090308
  2. CAPECITABINE [Suspect]
     Dosage: 1ST CYCLE
     Route: 048

REACTIONS (4)
  - BLOOD PRESSURE SYSTOLIC DECREASED [None]
  - KLEBSIELLA SEPSIS [None]
  - NAUSEA [None]
  - SEPSIS [None]
